FAERS Safety Report 7510134-0 (Version None)
Quarter: 2011Q2

REPORT INFORMATION
  Report Type: 
  Country: None (occurrence: None)
  Receive Date: 20110527
  Receipt Date: 20110523
  Transmission Date: 20111010
  Serious: Yes (Other)
  Sender: FDA-Public Use
  Company Number: US-ABBOTT-11P-163-0728399-00

PATIENT
  Age: 71 Year
  Sex: Female

DRUGS (10)
  1. LEXAPRO [Concomitant]
     Indication: PRODUCT USED FOR UNKNOWN INDICATION
  2. HUMIRA [Suspect]
     Indication: RHEUMATOID ARTHRITIS
     Dates: start: 20060101, end: 20100901
  3. SEROQUEL [Concomitant]
     Indication: PRODUCT USED FOR UNKNOWN INDICATION
  4. VITAMINS [Concomitant]
     Indication: PRODUCT USED FOR UNKNOWN INDICATION
  5. SIMVASTATIN [Concomitant]
     Indication: PRODUCT USED FOR UNKNOWN INDICATION
  6. FOLIC ACID [Concomitant]
     Indication: PRODUCT USED FOR UNKNOWN INDICATION
  7. VITAMIN B-12 [Concomitant]
     Indication: PRODUCT USED FOR UNKNOWN INDICATION
  8. HUMIRA [Suspect]
     Dates: start: 20110518
  9. GLATATINEAMINE [Concomitant]
     Indication: PRODUCT USED FOR UNKNOWN INDICATION
  10. CARBADOPA/LEVADOPA [Concomitant]
     Indication: PRODUCT USED FOR UNKNOWN INDICATION

REACTIONS (9)
  - PAIN [None]
  - SMALL INTESTINAL RESECTION [None]
  - OROPHARYNGEAL PAIN [None]
  - NORMAL PRESSURE HYDROCEPHALUS [None]
  - ABDOMINAL PAIN [None]
  - ILL-DEFINED DISORDER [None]
  - INFECTION [None]
  - ROAD TRAFFIC ACCIDENT [None]
  - PYREXIA [None]
